FAERS Safety Report 12940737 (Version 3)
Quarter: 2016Q4

REPORT INFORMATION
  Report Type: Report from Study
  Country: BR (occurrence: BR)
  Receive Date: 20161115
  Receipt Date: 20161220
  Transmission Date: 20170207
  Serious: Yes (Other)
  Sender: FDA-Public Use
  Company Number: PHHY2016BR154859

PATIENT
  Sex: Female
  Weight: 58 kg

DRUGS (2)
  1. DIOVAN [Suspect]
     Active Substance: VALSARTAN
     Indication: PALPITATIONS
     Dosage: 2 DF, QD (1 TABLET IN MORNING AND 1 ANOTHER TABLET AT NIGHT)
     Route: 065
  2. DIOVAN [Suspect]
     Active Substance: VALSARTAN
     Indication: HYPERTENSION
     Dosage: 80 MG, QD (28 TABLETS) (1 TABLET IN THE MORNING)
     Route: 048

REACTIONS (8)
  - Myocardial infarction [Unknown]
  - Palpitations [Not Recovered/Not Resolved]
  - Blood pressure increased [Not Recovered/Not Resolved]
  - Pollakiuria [Unknown]
  - Product counterfeit [Unknown]
  - Drug ineffective [Not Recovered/Not Resolved]
  - Sensation of foreign body [Not Recovered/Not Resolved]
  - Malaise [Not Recovered/Not Resolved]
